FAERS Safety Report 6242208-9 (Version None)
Quarter: 2009Q2

REPORT INFORMATION
  Report Type: 
  Country: None (occurrence: None)
  Receive Date: 20090624
  Receipt Date: 20090616
  Transmission Date: 20091009
  Serious: Yes (Hospitalization)
  Sender: FDA-Public Use
  Company Number: US-ELI_LILLY_AND_COMPANY-US200906003806

PATIENT
  Sex: Female
  Weight: 67.574 kg

DRUGS (8)
  1. FORTEO [Suspect]
     Dates: start: 20050101, end: 20071101
  2. LYRICA [Concomitant]
     Dosage: 75 MG, 3/D
  3. CELEBREX [Concomitant]
     Dosage: 200 MG, DAILY (1/D)
  4. AMBIEN CR [Concomitant]
     Dosage: 12.5 MG, EACH EVENING
  5. LEXAPRO [Concomitant]
     Dosage: 20 MG, DAILY (1/D)
  6. PRILOSEC [Concomitant]
     Dosage: 20 MG, 3/D
  7. BONIVA [Concomitant]
     Dosage: 200 MG, UNK
  8. LORTAB [Concomitant]
     Dosage: UNK, 4/D

REACTIONS (4)
  - KNEE ARTHROPLASTY [None]
  - KNEE OPERATION [None]
  - RESORPTION BONE INCREASED [None]
  - WEIGHT INCREASED [None]
